FAERS Safety Report 25099365 (Version 1)
Quarter: 2025Q1

REPORT INFORMATION
  Report Type: Spontaneous
  Country: CH (occurrence: CH)
  Receive Date: 20250320
  Receipt Date: 20250320
  Transmission Date: 20250408
  Serious: Yes (Hospitalization)
  Sender: JOHNSON AND JOHNSON
  Company Number: CH-JNJFOC-20250351729

PATIENT
  Age: 68 Year
  Sex: Male

DRUGS (24)
  1. HALOPERIDOL [Interacting]
     Active Substance: HALOPERIDOL
     Indication: Product used for unknown indication
     Route: 048
     Dates: start: 20250213, end: 20250213
  2. HALOPERIDOL [Interacting]
     Active Substance: HALOPERIDOL
     Dates: start: 20250220, end: 20250220
  3. HALOPERIDOL [Interacting]
     Active Substance: HALOPERIDOL
     Dates: start: 20250221, end: 20250221
  4. HALOPERIDOL [Interacting]
     Active Substance: HALOPERIDOL
     Dates: start: 20250221, end: 20250221
  5. HALOPERIDOL [Interacting]
     Active Substance: HALOPERIDOL
     Dates: start: 20250222, end: 20250222
  6. HALOPERIDOL [Interacting]
     Active Substance: HALOPERIDOL
     Dates: start: 20250222, end: 20250222
  7. HALOPERIDOL [Interacting]
     Active Substance: HALOPERIDOL
     Dates: start: 20250223, end: 20250223
  8. SERTRALINE [Interacting]
     Active Substance: SERTRALINE HYDROCHLORIDE
     Indication: Product used for unknown indication
     Route: 065
     Dates: start: 202411, end: 20250112
  9. SERTRALINE [Interacting]
     Active Substance: SERTRALINE HYDROCHLORIDE
     Route: 065
     Dates: start: 20250113, end: 20250214
  10. ARIPIPRAZOLE [Interacting]
     Active Substance: ARIPIPRAZOLE
     Indication: Product used for unknown indication
     Dates: start: 20250218, end: 20250218
  11. ARIPIPRAZOLE [Interacting]
     Active Substance: ARIPIPRAZOLE
  12. BUDESONIDE\FORMOTEROL [Interacting]
     Active Substance: BUDESONIDE\FORMOTEROL
     Indication: Product used for unknown indication
     Route: 055
     Dates: end: 20250226
  13. ALBUTEROL [Interacting]
     Active Substance: ALBUTEROL
     Indication: Product used for unknown indication
     Route: 065
     Dates: end: 20250226
  14. PIPERACILLIN SODIUM\TAZOBACTAM SODIUM [Concomitant]
     Active Substance: PIPERACILLIN SODIUM\TAZOBACTAM SODIUM
     Dates: start: 20250215
  15. INSULIN GLARGINE [Concomitant]
     Active Substance: INSULIN GLARGINE
  16. INSULIN ASPART [Concomitant]
     Active Substance: INSULIN ASPART
  17. CALCIUM\CHOLECALCIFEROL [Concomitant]
     Active Substance: CALCIUM\CHOLECALCIFEROL
     Dosage: 1000 MG/800 UI
  18. CLOMETHIAZOLE [Concomitant]
     Active Substance: CLOMETHIAZOLE
  19. CLOMETHIAZOLE [Concomitant]
     Active Substance: CLOMETHIAZOLE
     Dosage: 192 MILLIGRAM EVERY 1DAY(S) AU COUCHER
  20. LEVOTHYROXINE [Concomitant]
     Active Substance: LEVOTHYROXINE
  21. SEMAGLUTIDE [Concomitant]
     Active Substance: SEMAGLUTIDE
  22. TAMSULOSIN [Concomitant]
     Active Substance: TAMSULOSIN
  23. CEFTRIAXONE SODIUM [Concomitant]
     Active Substance: CEFTRIAXONE SODIUM
     Dates: start: 20250211, end: 20250214
  24. ENOXAPARIN [Concomitant]
     Active Substance: ENOXAPARIN

REACTIONS (4)
  - Electrocardiogram QT prolonged [Recovered/Resolved]
  - Potentiating drug interaction [Recovered/Resolved]
  - Electrocardiogram QT prolonged [Not Recovered/Not Resolved]
  - Drug interaction [Not Recovered/Not Resolved]

NARRATIVE: CASE EVENT DATE: 20250214
